FAERS Safety Report 6399259-3 (Version None)
Quarter: 2009Q4

REPORT INFORMATION
  Report Type: 
  Country: None (occurrence: None)
  Receive Date: 20091014
  Receipt Date: 20080314
  Transmission Date: 20100525
  Serious: Yes (Hospitalization, Other)
  Sender: FDA-Public Use
  Company Number: US-ASTRAZENECA-2007UW02138

PATIENT
  Age: 607 Month
  Sex: Female
  Weight: 104.3 kg

DRUGS (20)
  1. SEROQUEL [Suspect]
     Indication: BIPOLAR DISORDER
     Dosage: 100-900 MG
     Route: 048
     Dates: start: 20020101, end: 20070420
  2. SEROQUEL [Suspect]
     Indication: DEPRESSION
     Dosage: 100-900 MG
     Route: 048
     Dates: start: 20020101, end: 20070420
  3. SEROQUEL [Suspect]
     Indication: SLEEP DISORDER
     Dosage: 100-900 MG
     Route: 048
     Dates: start: 20020101, end: 20070420
  4. SEROQUEL [Suspect]
     Dosage: 100-900 MG QHS
     Route: 048
     Dates: start: 20021111
  5. SEROQUEL [Suspect]
     Dosage: 100-900 MG QHS
     Route: 048
     Dates: start: 20021111
  6. SEROQUEL [Suspect]
     Dosage: 100-900 MG QHS
     Route: 048
     Dates: start: 20021111
  7. ABILIFY [Concomitant]
  8. PROZAC [Concomitant]
  9. HYDROXYZINE [Concomitant]
  10. CYMBALTA [Concomitant]
  11. CELEXA [Concomitant]
  12. XANAX [Concomitant]
     Dosage: 1-2 MG 0.5 BID, 1 MG BID
     Route: 048
     Dates: start: 20020830, end: 20040301
  13. RESTORIL [Concomitant]
     Indication: SLEEP DISORDER
     Route: 048
     Dates: start: 20020830
  14. TRIAMTERENE AND HYDROCHLOROTHIAZIDE [Concomitant]
     Indication: HYPERTENSION
     Dosage: 37.5/25 1 QD
     Dates: start: 20021111
  15. GLYBURIDE [Concomitant]
     Dates: start: 20060922
  16. METFORMIN HYDROCHLORIDE [Concomitant]
     Dates: start: 20060922
  17. ELAVIL [Concomitant]
     Dosage: 25-50 MG
     Route: 048
     Dates: start: 20020823
  18. WELLBUTRIN [Concomitant]
     Dates: start: 20020810
  19. NEURONTIN [Concomitant]
     Route: 048
     Dates: start: 20060922
  20. LISINOPRIL [Concomitant]
     Route: 048
     Dates: start: 20080104

REACTIONS (14)
  - ARTHRALGIA [None]
  - BACK PAIN [None]
  - DIZZINESS [None]
  - HYPERTENSION [None]
  - INTERVERTEBRAL DISC DEGENERATION [None]
  - INTERVERTEBRAL DISC DISORDER [None]
  - INTERVERTEBRAL DISC PROTRUSION [None]
  - LOSS OF CONSCIOUSNESS [None]
  - MULTIPLE INJURIES [None]
  - MUSCLE SPASMS [None]
  - PAIN [None]
  - RADICULOPATHY [None]
  - SYNCOPE [None]
  - TYPE 2 DIABETES MELLITUS [None]
